FAERS Safety Report 9967283 (Version 2)
Quarter: 2014Q1

REPORT INFORMATION
  Report Type: Report from Study
  Country: US (occurrence: US)
  Receive Date: 20140305
  Receipt Date: 20140305
  Transmission Date: 20141002
  Serious: No
  Sender: FDA-Public Use
  Company Number: US-ABBVIE-13P-163-1114532-00

PATIENT
  Age: 40 Year
  Sex: Female

DRUGS (9)
  1. HUMIRA [Suspect]
     Indication: CROHN^S DISEASE
     Dates: start: 20130617, end: 20130617
  2. HUMIRA [Suspect]
     Dates: start: 20130701, end: 20130701
  3. HUMIRA [Suspect]
     Dates: start: 20130715
  4. LIALDA [Concomitant]
     Indication: CROHN^S DISEASE
     Route: 048
  5. SYNTHROID [Concomitant]
     Indication: HYPOTHYROIDISM
     Route: 048
  6. ORTHO NOVUM [Concomitant]
     Indication: CONTRACEPTION
  7. ACYCLOVIR [Concomitant]
     Indication: INFECTION PROPHYLAXIS
     Route: 048
  8. 6-MP [Concomitant]
     Indication: CROHN^S DISEASE
     Dosage: HALF PILL ORALLY DAILY
     Route: 048
     Dates: end: 20130801
  9. UCERIS [Concomitant]
     Indication: CROHN^S DISEASE
     Dosage: ONE DAILY
     Dates: end: 20130821

REACTIONS (9)
  - Increased tendency to bruise [Not Recovered/Not Resolved]
  - Increased tendency to bruise [Not Recovered/Not Resolved]
  - Local swelling [Not Recovered/Not Resolved]
  - Vessel puncture site bruise [Not Recovered/Not Resolved]
  - Injection site bruising [Not Recovered/Not Resolved]
  - Depression [Not Recovered/Not Resolved]
  - Injection site nodule [Unknown]
  - Arthropod bite [Unknown]
  - Impaired healing [Unknown]
